FAERS Safety Report 6133450-6 (Version None)
Quarter: 2009Q1

REPORT INFORMATION
  Report Type: 
  Country: None (occurrence: None)
  Receive Date: 20090326
  Receipt Date: 20090326
  Transmission Date: 20090719
  Serious: Yes (Hospitalization, Disabling, Other)
  Sender: FDA-Public Use
  Company Number: PHHO2003ZA04372

PATIENT
  Sex: Female
  Weight: 68 kg

DRUGS (1)
  1. CGS 20267 T30748+ [Suspect]
     Indication: BREAST CANCER
     Dosage: 2.5 MG, QD
     Route: 048
     Dates: start: 20000804

REACTIONS (4)
  - CALLUS FORMATION DELAYED [None]
  - FALL [None]
  - OSTEOSCLEROSIS [None]
  - WRIST FRACTURE [None]
